FAERS Safety Report 13589855 (Version 17)
Quarter: 2020Q2

REPORT INFORMATION
  Report Type: Report from Study
  Country: CA (occurrence: CA)
  Receive Date: 20170530
  Receipt Date: 20200616
  Transmission Date: 20200713
  Serious: Yes (Life-Threatening, Hospitalization, Other)
  Sender: FDA-Public Use
  Company Number: PHHY2016CA144909

PATIENT
  Age: 53 Year
  Sex: Female

DRUGS (18)
  1. COSENTYX [Suspect]
     Active Substance: SECUKINUMAB
     Indication: ANKYLOSING SPONDYLITIS
     Dosage: 300 MG, QW
     Route: 058
     Dates: start: 20161021
  2. TALTZ [Suspect]
     Active Substance: IXEKIZUMAB
     Indication: PRODUCT USED FOR UNKNOWN INDICATION
     Dosage: UNK
     Route: 065
  3. COSENTYX [Suspect]
     Active Substance: SECUKINUMAB
     Indication: PSORIATIC ARTHROPATHY
     Dosage: 300 MG, QW
     Route: 058
     Dates: start: 20161028
  4. COSENTYX [Suspect]
     Active Substance: SECUKINUMAB
     Dosage: 300 MG, QMO
     Route: 058
     Dates: start: 20161211
  5. COSENTYX [Suspect]
     Active Substance: SECUKINUMAB
     Dosage: 150 MG, QW
     Route: 058
     Dates: start: 20170401
  6. COSENTYX [Suspect]
     Active Substance: SECUKINUMAB
     Dosage: 150 MG, QW
     Route: 058
     Dates: start: 20200203
  7. COSENTYX [Suspect]
     Active Substance: SECUKINUMAB
     Dosage: 150 MG, QW
     Route: 058
     Dates: start: 20170724
  8. COSENTYX [Suspect]
     Active Substance: SECUKINUMAB
     Dosage: 150 MG, QW
     Route: 058
     Dates: start: 2018
  9. COSENTYX [Suspect]
     Active Substance: SECUKINUMAB
     Dosage: 150 MG, QW
     Route: 058
     Dates: start: 20200121
  10. COSENTYX [Suspect]
     Active Substance: SECUKINUMAB
     Dosage: 150 MG, QW
     Route: 058
     Dates: end: 202002
  11. STELARA [Concomitant]
     Active Substance: USTEKINUMAB
     Indication: PRODUCT USED FOR UNKNOWN INDICATION
     Dosage: UNK
     Route: 065
     Dates: start: 201609
  12. COSENTYX [Suspect]
     Active Substance: SECUKINUMAB
     Dosage: 300 MG, QW
     Route: 058
     Dates: start: 20161104
  13. COSENTYX [Suspect]
     Active Substance: SECUKINUMAB
     Dosage: 300 MG, QW
     Route: 058
     Dates: start: 20161111
  14. COSENTYX [Suspect]
     Active Substance: SECUKINUMAB
     Dosage: 150 MG, QW
     Route: 058
     Dates: start: 201705
  15. COSENTYX [Suspect]
     Active Substance: SECUKINUMAB
     Dosage: 150 MG, QW
     Route: 058
     Dates: start: 20170811
  16. COSENTYX [Suspect]
     Active Substance: SECUKINUMAB
     Indication: PSORIASIS
     Dosage: 150 MG, QW
     Route: 058
     Dates: start: 20161014
  17. COSENTYX [Suspect]
     Active Substance: SECUKINUMAB
     Dosage: 300 MG, QMO
     Route: 058
     Dates: start: 20170211
  18. COSENTYX [Suspect]
     Active Substance: SECUKINUMAB
     Dosage: 150 MG, QW
     Route: 058
     Dates: start: 201703

REACTIONS (47)
  - Irritable bowel syndrome [Unknown]
  - General physical health deterioration [Unknown]
  - Myocardial infarction [Unknown]
  - Pain in extremity [Recovering/Resolving]
  - Brain compression [Unknown]
  - Gastroenteritis norovirus [Unknown]
  - Vision blurred [Unknown]
  - Fatigue [Unknown]
  - Spinal pain [Unknown]
  - Fungal infection [Unknown]
  - Psoriasis [Recovering/Resolving]
  - Depression [Unknown]
  - Back pain [Recovering/Resolving]
  - Asthenia [Unknown]
  - Product prescribing error [Unknown]
  - Ear discomfort [Unknown]
  - Epiglottitis [Unknown]
  - Tremor [Unknown]
  - Dry mouth [Unknown]
  - Joint injury [Unknown]
  - Respiratory failure [Unknown]
  - Diabetes mellitus [Unknown]
  - Vertigo [Not Recovered/Not Resolved]
  - Stress [Unknown]
  - Dizziness [Unknown]
  - Arthralgia [Unknown]
  - Muscle spasms [Unknown]
  - Night sweats [Unknown]
  - Aphthous ulcer [Unknown]
  - Panic attack [Not Recovered/Not Resolved]
  - Concussion [Unknown]
  - Hypoaesthesia [Unknown]
  - Bone pain [Unknown]
  - Cough [Unknown]
  - Near death experience [Unknown]
  - Breast mass [Unknown]
  - Pneumonia [Unknown]
  - Inflammation [Unknown]
  - Anxiety [Unknown]
  - Skin fissures [Unknown]
  - Hypotension [Unknown]
  - Musculoskeletal stiffness [Unknown]
  - Malaise [Unknown]
  - Skin discolouration [Unknown]
  - Chest pain [Unknown]
  - Nausea [Unknown]
  - Skin plaque [Unknown]

NARRATIVE: CASE EVENT DATE: 20161014
